FAERS Safety Report 6767156-7 (Version None)
Quarter: 2010Q2

REPORT INFORMATION
  Report Type: 
  Country: None (occurrence: None)
  Receive Date: 20100614
  Receipt Date: 20100607
  Transmission Date: 20101027
  Serious: Yes (Life-Threatening, Hospitalization, Other)
  Sender: FDA-Public Use
  Company Number: US-BAYER-201020131NA

PATIENT
  Sex: Female

DRUGS (3)
  1. YASMIN [Suspect]
     Indication: DRUG USE FOR UNKNOWN INDICATION
     Route: 048
     Dates: start: 20070201, end: 20070101
  2. YAZ [Suspect]
     Indication: DRUG USE FOR UNKNOWN INDICATION
     Route: 048
     Dates: end: 20071109
  3. COMPLET BLOOD TRANSFUSION [Concomitant]

REACTIONS (9)
  - ABDOMINAL PAIN [None]
  - CAESAREAN SECTION [None]
  - CARDIAC ARREST [None]
  - COMPLICATION OF PREGNANCY [None]
  - GALLBLADDER DISORDER [None]
  - GALLBLADDER ENLARGEMENT [None]
  - HYPERTENSION [None]
  - PLACENTA PRAEVIA [None]
  - PREGNANCY ON ORAL CONTRACEPTIVE [None]
